FAERS Safety Report 6516908-7 (Version None)
Quarter: 2009Q4

REPORT INFORMATION
  Report Type: 
  Country: None (occurrence: None)
  Receive Date: 20091223
  Receipt Date: 20091211
  Transmission Date: 20100525
  Serious: Yes (Other)
  Sender: FDA-Public Use
  Company Number: US-JNJFOC-20091204695

PATIENT
  Age: 27 Year
  Sex: Male
  Weight: 68.04 kg

DRUGS (1)
  1. EXTRA STRENGTH TYLENOL [Suspect]
     Indication: INSOMNIA
     Route: 048

REACTIONS (3)
  - INTENTIONAL OVERDOSE [None]
  - NONSPECIFIC REACTION [None]
  - VOMITING [None]
